FAERS Safety Report 4486381-1 (Version None)
Quarter: 2004Q4

REPORT INFORMATION
  Report Type: 
  Country: None (occurrence: None)
  Receive Date: 20041022
  Receipt Date: 20041011
  Transmission Date: 20050328
  Serious: Yes (Other)
  Sender: FDA-Public Use
  Company Number: 2004237891US

PATIENT
  Age: 33 Month
  Sex: Female
  Weight: 16.8 kg

DRUGS (1)
  1. DEPO-TESTOSTERONE [Suspect]

REACTIONS (2)
  - ACCIDENTAL EXPOSURE [None]
  - PRECOCIOUS PUBERTY [None]
